FAERS Safety Report 9201949 (Version 1)
Quarter: 2013Q1

REPORT INFORMATION
  Report Type: Spontaneous
  Country: US (occurrence: None)
  Receive Date: 20130328
  Receipt Date: 20130328
  Transmission Date: 20140127
  Serious: Yes (Hospitalization)
  Sender: FDA-Public Use
  Company Number: IMP_06629_2013

PATIENT
  Age: 14 Year
  Sex: Female

DRUGS (4)
  1. BUPROPION [Suspect]
     Indication: BIPOLAR DISORDER
     Dosage: (DF) (4 WEEKS 3 DAYS) UNTIL NOT CONTINUING?
  2. BUPROPION [Suspect]
     Indication: SUICIDAL IDEATION
     Dosage: (DF) (4 WEEKS 3 DAYS) UNTIL NOT CONTINUING?
  3. LAMOTRIGINE [Suspect]
     Indication: BIPOLAR DISORDER
     Dosage: (4 WEEKS 3 DAYS) ?
  4. LAMOTRIGINE [Suspect]
     Indication: SUICIDAL IDEATION
     Dosage: (4 WEEKS 3 DAYS) ?

REACTIONS (23)
  - Rash erythematous [None]
  - Pyrexia [None]
  - Lymphadenopathy [None]
  - Lymphadenitis [None]
  - Pharyngitis [None]
  - Glossitis [None]
  - Transaminases increased [None]
  - Eosinophilia [None]
  - Pain [None]
  - Pharyngeal exudate [None]
  - Renal failure acute [None]
  - Hepatitis [None]
  - Fluid overload [None]
  - Anaemia [None]
  - Pancreatitis [None]
  - Thyroiditis [None]
  - Tubulointerstitial nephritis [None]
  - Respiratory distress [None]
  - Respiratory failure [None]
  - Cardiac arrest [None]
  - Torsade de pointes [None]
  - Electrocardiogram QT prolonged [None]
  - Drug reaction with eosinophilia and systemic symptoms [None]
